FAERS Safety Report 5831870-8 (Version None)
Quarter: 2008Q3

REPORT INFORMATION
  Report Type: 
  Country: None (occurrence: None)
  Receive Date: 20080731
  Receipt Date: 20080725
  Transmission Date: 20090109
  Serious: Yes (Hospitalization)
  Sender: FDA-Public Use
  Company Number: TPG2007A00615

PATIENT
  Age: 69 Year
  Sex: Male

DRUGS (7)
  1. LANSOPRAZOLE [Suspect]
     Indication: REFLUX OESOPHAGITIS
     Dosage: 30 MG (MG)
     Route: 048
     Dates: start: 20021031, end: 20070726
  2. HAWTHORN             (CRATEGUS LAEVIGATA) (CAPSULES) [Concomitant]
  3. ALLOPURINOL [Concomitant]
  4. GODAMED   (PAYNOCIL) (TABLET) [Concomitant]
  5. TALCID       (HYDROTALCITE) [Concomitant]
  6. METOCLOPRAMIDE HCL [Concomitant]
  7. TAMSULOSIN HCL [Concomitant]

REACTIONS (12)
  - ABDOMINAL PAIN UPPER [None]
  - ATRIAL FIBRILLATION [None]
  - BLOOD PRESSURE DECREASED [None]
  - CHROMATURIA [None]
  - DIZZINESS [None]
  - EJECTION FRACTION DECREASED [None]
  - FAECES PALE [None]
  - JAUNDICE [None]
  - PANCREATIC CARCINOMA [None]
  - PRESYNCOPE [None]
  - VENTRICULAR ARRHYTHMIA [None]
  - VENTRICULAR TACHYCARDIA [None]
